FAERS Safety Report 8328872-9 (Version None)
Quarter: 2012Q2

REPORT INFORMATION
  Report Type: 
  Country: None (occurrence: None)
  Receive Date: 20120502
  Receipt Date: 20100913
  Transmission Date: 20120825
  Serious: No
  Sender: FDA-Public Use
  Company Number: US-TEVA-2010004869

PATIENT
  Sex: Female
  Weight: 56.75 kg

DRUGS (2)
  1. NUVIGIL [Suspect]
     Indication: SLEEP APNOEA SYNDROME
     Route: 048
  2. PAXIL [Concomitant]
     Indication: HOT FLUSH
     Dates: start: 20080101

REACTIONS (1)
  - DRUG INEFFECTIVE [None]
